FAERS Safety Report 21663221 (Version 4)
Quarter: 2023Q2

REPORT INFORMATION
  Report Type: Report from Study
  Country: US (occurrence: US)
  Receive Date: 20221130
  Receipt Date: 20230412
  Transmission Date: 20230722
  Serious: No
  Sender: FDA-Public Use
  Company Number: US-ABBVIE-4211909

PATIENT
  Age: 23 Year
  Sex: Female

DRUGS (3)
  1. HUMIRA [Suspect]
     Active Substance: ADALIMUMAB
     Indication: Psoriatic arthropathy
     Dosage: FORM STRENGTH - 40MG?CF
     Route: 058
     Dates: start: 202207
  2. HUMIRA [Suspect]
     Active Substance: ADALIMUMAB
     Dosage: FORM STRENGTH - 40MG?END DATE 7JUL 2022?CF
     Route: 058
     Dates: start: 20220720
  3. HUMIRA [Suspect]
     Active Substance: ADALIMUMAB
     Dosage: FORM STRENGTH - 40MG?END DATE 7JUL 2022?CF
     Route: 058
     Dates: start: 20220707

REACTIONS (8)
  - Psoriatic arthropathy [Not Recovered/Not Resolved]
  - Arthralgia [Recovering/Resolving]
  - Therapeutic response shortened [Not Recovered/Not Resolved]
  - Joint swelling [Recovering/Resolving]
  - Joint lock [Unknown]
  - Gait disturbance [Not Recovered/Not Resolved]
  - Drug tolerance [Recovered/Resolved]
  - Contusion [Not Recovered/Not Resolved]

NARRATIVE: CASE EVENT DATE: 20221001
